FAERS Safety Report 10251925 (Version 1)
Quarter: 2014Q2

REPORT INFORMATION
  Report Type: Spontaneous
  Country: GB (occurrence: GB)
  Receive Date: 20140623
  Receipt Date: 20140623
  Transmission Date: 20141212
  Serious: Yes (Hospitalization)
  Sender: FDA-Public Use
  Company Number: GB-ACCORD-024309

PATIENT
  Age: 52 Year
  Sex: Male
  Weight: 105.5 kg

DRUGS (2)
  1. TACROLIMUS [Suspect]
     Indication: RENAL TRANSPLANT
  2. CLARITHROMYCIN/CLARITHROMYCIN LACTOBIONATE [Interacting]
     Indication: LOWER RESPIRATORY TRACT INFECTION
     Route: 048

REACTIONS (4)
  - Neurological symptom [Recovered/Resolved]
  - Immunosuppressant drug level increased [Recovered/Resolved]
  - Renal failure acute [Recovered/Resolved]
  - Drug interaction [Unknown]
